FAERS Safety Report 16107118 (Version 5)
Quarter: 2019Q1

REPORT INFORMATION
  Report Type: Spontaneous
  Country: CH (occurrence: CH)
  Receive Date: 20190322
  Receipt Date: 20190329
  Transmission Date: 20190418
  Serious: Yes (Hospitalization, Other)
  Sender: FDA-Public Use
  Company Number: CH-PFIZER INC-2019125014

PATIENT
  Age: 84 Year
  Sex: Male
  Weight: 79 kg

DRUGS (12)
  1. ATORVASTATIN [Concomitant]
     Active Substance: ATORVASTATIN
     Dosage: 40 MG, UNK
     Route: 065
  2. PANTOPRAZOLE [Concomitant]
     Active Substance: PANTOPRAZOLE
     Dosage: 40 MG, UNK
     Route: 065
  3. ELIQUIS [Interacting]
     Active Substance: APIXABAN
     Dosage: 5 MG, 2X/DAY
     Route: 048
     Dates: start: 2016, end: 20190226
  4. RELAXANE [Concomitant]
     Dosage: UNK
  5. CORDARONE [Suspect]
     Active Substance: AMIODARONE HYDROCHLORIDE
     Indication: ARRHYTHMIA
     Dosage: 200 MG, 3X/DAY
     Route: 048
     Dates: start: 20181211, end: 20190228
  6. TRIATEC [CODEINE PHOSPHATE;PARACETAMOL] [Concomitant]
     Active Substance: ACETAMINOPHEN\CODEINE PHOSPHATE
     Dosage: 1.25 MG, UNK
     Route: 065
     Dates: start: 20190220
  7. ELIQUIS [Interacting]
     Active Substance: APIXABAN
     Dosage: 2.5 MG, 2X/DAY
     Route: 048
     Dates: start: 20190305
  8. ALDACTONE [Concomitant]
     Active Substance: SPIRONOLACTONE
     Dosage: 50 MG, UNK
     Route: 065
  9. AMPHO-MORONAL [Concomitant]
     Active Substance: AMPHOTERICIN B
     Dosage: 1 DF, UNK
     Route: 065
     Dates: start: 201902, end: 201902
  10. ACIDUM FOLICUM STREULI [Concomitant]
     Active Substance: FOLIC ACID
     Dosage: 5 MG, UNK
     Route: 065
  11. TORASEMID SANDOZ ECO [Concomitant]
     Active Substance: TORSEMIDE
     Dosage: 50 MG, UNK
     Route: 065
  12. MOTILIUM [Concomitant]
     Active Substance: DOMPERIDONE
     Dosage: 1 DF, UNK
     Route: 065

REACTIONS (8)
  - Epistaxis [Recovered/Resolved]
  - Urosepsis [Recovered/Resolved]
  - Oral candidiasis [Recovered/Resolved]
  - Acute kidney injury [Not Recovered/Not Resolved]
  - Drug interaction [Recovered/Resolved]
  - Pneumovirus test positive [Not Recovered/Not Resolved]
  - Lung disorder [Not Recovered/Not Resolved]
  - Incorrect dose administered [Recovered/Resolved]

NARRATIVE: CASE EVENT DATE: 20181211
